FAERS Safety Report 7554049-0 (Version None)
Quarter: 2011Q2

REPORT INFORMATION
  Report Type: 
  Country: None (occurrence: None)
  Receive Date: 20110610
  Receipt Date: 20110527
  Transmission Date: 20111010
  Serious: Yes (Death)
  Sender: FDA-Public Use
  Company Number: 2011-245

PATIENT
  Age: 61 Year
  Sex: Male

DRUGS (1)
  1. FAZACLO ODT [Suspect]
     Dosage: 600 MG, QD, ORAL
     Route: 048
     Dates: start: 20070223, end: 20110507

REACTIONS (1)
  - LUNG NEOPLASM MALIGNANT [None]
